FAERS Safety Report 4590709-1 (Version None)
Quarter: 2005Q1

REPORT INFORMATION
  Report Type: 
  Country: None (occurrence: None)
  Receive Date: 20050224
  Receipt Date: 20050217
  Transmission Date: 20050727
  Serious: Yes (Disabling)
  Sender: FDA-Public Use
  Company Number: US-MERCK-0502USA02246

PATIENT
  Age: 86 Year
  Sex: Male

DRUGS (5)
  1. PROSCAR [Suspect]
     Indication: POLLAKIURIA
     Route: 048
     Dates: start: 20040101
  2. FLOMAX [Concomitant]
     Route: 065
  3. ZOLOFT [Concomitant]
     Route: 065
  4. ZESTRIL [Concomitant]
     Route: 065
  5. XALATAN [Concomitant]
     Route: 065

REACTIONS (1)
  - INTRAOCULAR PRESSURE INCREASED [None]
